FAERS Safety Report 5155906-5 (Version None)
Quarter: 2006Q4

REPORT INFORMATION
  Report Type: 
  Country: None (occurrence: None)
  Receive Date: 20061114
  Receipt Date: 20061030
  Transmission Date: 20070319
  Serious: Yes (Other)
  Sender: FDA-Public Use
  Company Number: 2006136728

PATIENT
  Sex: Male

DRUGS (2)
  1. CELEBREX [Suspect]
     Dates: start: 20020101, end: 20020401
  2. BEXTRA [Suspect]
     Dates: start: 20020401

REACTIONS (2)
  - CEREBRAL ARTERY OCCLUSION [None]
  - CEREBRAL INFARCTION [None]
